FAERS Safety Report 8837255 (Version 1)
Quarter: 2012Q4

REPORT INFORMATION
  Report Type: 
  Country: US (occurrence: US)
  Receive Date: 20121012
  Receipt Date: 20121012
  Transmission Date: 20130627
  Serious: Yes (Hospitalization)
  Sender: FDA-Public Use
  Company Number: US-MSD-1207USA012350

PATIENT
  Age: 48 Year
  Sex: Female

DRUGS (8)
  1. SINGULAIR [Suspect]
     Dosage: 10 mg, qd
     Route: 048
  2. IBUPROFEN [Suspect]
     Dosage: 400 mg, tid
     Route: 048
  3. BUDESONIDE (+) FORMOTEROL FUMARATE [Suspect]
     Route: 055
  4. ACETAMINOPHEN\TRAMADOL HYDROCHLORIDE [Suspect]
     Dosage: 325 mg/37.5 mg, tid
     Route: 048
  5. ALBUTEROL [Suspect]
     Dosage: 100 Microgram, tid
     Route: 055
  6. LEVOTHYROX [Concomitant]
  7. LYSANXIA [Concomitant]
  8. HUMALOG [Concomitant]

REACTIONS (1)
  - Meningorrhagia [Unknown]
